FAERS Safety Report 7964424-8 (Version None)
Quarter: 2011Q4

REPORT INFORMATION
  Report Type: 
  Country: None (occurrence: None)
  Receive Date: 20111208
  Receipt Date: 20111206
  Transmission Date: 20120403
  Serious: Yes (Life-Threatening)
  Sender: FDA-Public Use
  Company Number: JP-PFIZER INC-2011280096

PATIENT
  Age: 70 Year
  Sex: Male

DRUGS (18)
  1. ONE-ALPHA [Concomitant]
     Dosage: UNK
  2. RABEPRAZOLE SODIUM [Concomitant]
     Dosage: UNK
  3. DIOVAN [Concomitant]
     Dosage: 80 MG, 1X/DAY
     Route: 048
  4. SHAKUYAKU-KANZO-TO [Concomitant]
     Dosage: 2 G, 1X/DAY
     Route: 048
  5. VOLTAREN [Concomitant]
     Dosage: 25 MG, AS NEEDED
     Route: 048
  6. NORVASC [Concomitant]
     Dosage: 5 MG, 1X/DAY
     Route: 048
  7. LASIX [Concomitant]
     Dosage: 40 MG, 1X/DAY
     Route: 048
  8. NEUROTROPIN [Concomitant]
     Indication: BACK PAIN
     Dosage: THREE TIMES A WEEK
  9. NORNICICAMIN [Concomitant]
     Indication: BACK PAIN
     Dosage: UNK
  10. ALFAROL [Concomitant]
     Dosage: 0.25 UG, 2X/DAY
     Route: 048
  11. EPINASTINE HYDROCHLORIDE [Concomitant]
     Dosage: 20 MG, 1X/DAY
     Route: 048
  12. LYRICA [Suspect]
     Dosage: UNK
     Route: 048
     Dates: start: 20111031, end: 20111104
  13. ASPIRIN [Concomitant]
     Dosage: 100 MG, 1X/DAY
     Route: 048
  14. NESPO [Concomitant]
     Indication: ANAEMIA
     Dosage: 10 UG, WEEKLY
     Route: 042
  15. TRAMADOL HYDROCHLORIDE AND ACETAMINOPHEN [Suspect]
     Dosage: 1 DF, 1X/DAY
     Route: 048
     Dates: start: 20110930, end: 20111104
  16. CINACALCET HYDROCHLORIDE [Concomitant]
     Dosage: 25 MG, 1X/DAY
     Route: 048
  17. LYRICA [Suspect]
     Indication: PAIN
     Dosage: 50 MG/DAY, 75MG/DAY SOMETINES AFTER DIALYSIS
     Route: 048
     Dates: start: 20110824, end: 20110902
  18. TRAMADOL HYDROCHLORIDE AND ACETAMINOPHEN [Suspect]
     Indication: PAIN
     Dosage: 1 DF, 1X/DAY
     Route: 048
     Dates: start: 20110829, end: 20110920

REACTIONS (2)
  - PULMONARY OEDEMA [None]
  - RESPIRATORY FAILURE [None]
